FAERS Safety Report 19570877 (Version 2)
Quarter: 2022Q1

REPORT INFORMATION
  Report Type: Spontaneous
  Country: US (occurrence: None)
  Receive Date: 20210716
  Receipt Date: 20220211
  Transmission Date: 20220423
  Serious: Yes (Other)
  Sender: FDA-Public Use
  Company Number: 2021A617550

PATIENT
  Age: 19625 Day
  Sex: Female
  Weight: 117.9 kg

DRUGS (53)
  1. PRILOSEC [Suspect]
     Active Substance: OMEPRAZOLE MAGNESIUM
     Indication: Gastrooesophageal reflux disease
     Route: 048
     Dates: end: 2014
  2. PRILOSEC [Suspect]
     Active Substance: OMEPRAZOLE MAGNESIUM
     Indication: Gastrooesophageal reflux disease
     Route: 048
     Dates: end: 2014
  3. PRILOSEC [Suspect]
     Active Substance: OMEPRAZOLE MAGNESIUM
     Indication: Gastrooesophageal reflux disease
     Dosage: GENERIC
     Route: 065
     Dates: start: 2013
  4. PRILOSEC [Suspect]
     Active Substance: OMEPRAZOLE MAGNESIUM
     Indication: Gastrooesophageal reflux disease
     Dosage: GENERIC
     Route: 065
     Dates: start: 2013
  5. PROTONIX [Suspect]
     Active Substance: PANTOPRAZOLE SODIUM
     Indication: Gastrooesophageal reflux disease
     Route: 065
     Dates: end: 2014
  6. PROTONIX [Suspect]
     Active Substance: PANTOPRAZOLE SODIUM
     Indication: Gastrooesophageal reflux disease
     Route: 065
     Dates: end: 2014
  7. ZEGERID OTC [Suspect]
     Active Substance: OMEPRAZOLE\SODIUM BICARBONATE
     Indication: Gastrooesophageal reflux disease
     Route: 065
     Dates: start: 2012, end: 2014
  8. ZEGERID OTC [Suspect]
     Active Substance: OMEPRAZOLE\SODIUM BICARBONATE
     Indication: Gastrooesophageal reflux disease
     Route: 065
     Dates: start: 2012, end: 2014
  9. TRAMADOL [Concomitant]
     Active Substance: TRAMADOL
     Indication: Pain
  10. ULTRAM [Concomitant]
     Active Substance: TRAMADOL HYDROCHLORIDE
     Indication: Pain
  11. AMOXICILLIN [Concomitant]
     Active Substance: AMOXICILLIN
     Indication: Infection
  12. CAPTOPRIL [Concomitant]
     Active Substance: CAPTOPRIL
     Indication: Cardiac disorder
  13. LISINOPRIL [Concomitant]
     Active Substance: LISINOPRIL
     Indication: Blood pressure abnormal
  14. FUROSEMIDE [Concomitant]
     Active Substance: FUROSEMIDE
     Indication: Renal disorder
  15. LIPITOR [Concomitant]
     Active Substance: ATORVASTATIN CALCIUM
     Indication: Blood cholesterol abnormal
  16. ALLOPURINOL [Concomitant]
     Active Substance: ALLOPURINOL
     Indication: Renal disorder
  17. ACETAMINOPHEN [Concomitant]
     Active Substance: ACETAMINOPHEN
     Indication: Pain
  18. FAMOTIDINE [Concomitant]
     Active Substance: FAMOTIDINE
  19. ZANTAC [Concomitant]
     Active Substance: RANITIDINE HYDROCHLORIDE
  20. TUMS [Concomitant]
     Active Substance: CALCIUM CARBONATE
  21. ROLAIDS [Concomitant]
     Active Substance: CALCIUM CARBONATE\MAGNESIUM HYDROXIDE
  22. PEPTO-BISMOL [Concomitant]
     Active Substance: BISMUTH SUBSALICYLATE
  23. LISINOPRIL AND HYDROCHLOROTHIAZIDE [Concomitant]
     Active Substance: HYDROCHLOROTHIAZIDE\LISINOPRIL
  24. PAXIL [Concomitant]
     Active Substance: PAROXETINE HYDROCHLORIDE
  25. CYMBALTA [Concomitant]
     Active Substance: DULOXETINE HYDROCHLORIDE
  26. AUGMENTIN [Concomitant]
     Active Substance: AMOXICILLIN\CLAVULANATE POTASSIUM
  27. AMBIEN [Concomitant]
     Active Substance: ZOLPIDEM TARTRATE
  28. VITAMINS [Concomitant]
     Active Substance: VITAMINS
  29. POTASSIUM CARBONATE [Concomitant]
     Active Substance: POTASSIUM CARBONATE
  30. SIMETHICONE (DIMETHICONE) [Concomitant]
     Active Substance: DIMETHICONE
  31. ALAVERT ALLERGY [Concomitant]
     Active Substance: LORATADINE
  32. LIDOCAINE [Concomitant]
     Active Substance: LIDOCAINE
  33. WELLBUTRIN [Concomitant]
     Active Substance: BUPROPION HYDROCHLORIDE
  34. PRINZIDE [Concomitant]
     Active Substance: HYDROCHLOROTHIAZIDE\LISINOPRIL
  35. PRINZIDE [Concomitant]
     Active Substance: HYDROCHLOROTHIAZIDE\LISINOPRIL
  36. DESYREL [Concomitant]
     Active Substance: TRAZODONE HYDROCHLORIDE
  37. DESYREL [Concomitant]
     Active Substance: TRAZODONE HYDROCHLORIDE
  38. ARMOUR THYROID [Concomitant]
     Active Substance: THYROID, PORCINE
  39. ARMOUR THYROID [Concomitant]
     Active Substance: THYROID, PORCINE
  40. GABAPENTIN [Concomitant]
     Active Substance: GABAPENTIN
  41. GABAPENTIN [Concomitant]
     Active Substance: GABAPENTIN
  42. RELAFEN [Concomitant]
     Active Substance: NABUMETONE
  43. RELAFEN [Concomitant]
     Active Substance: NABUMETONE
  44. MEDROL [Concomitant]
     Active Substance: METHYLPREDNISOLONE
  45. MEDROL [Concomitant]
     Active Substance: METHYLPREDNISOLONE
  46. SUCRALFATE [Concomitant]
     Active Substance: SUCRALFATE
  47. SUCRALFATE [Concomitant]
     Active Substance: SUCRALFATE
  48. FLONASE [Concomitant]
     Active Substance: FLUTICASONE PROPIONATE
  49. FLONASE [Concomitant]
     Active Substance: FLUTICASONE PROPIONATE
  50. MELATONIN [Concomitant]
     Active Substance: MELATONIN
  51. MELATONIN [Concomitant]
     Active Substance: MELATONIN
  52. DUONEB [Concomitant]
     Active Substance: ALBUTEROL SULFATE\IPRATROPIUM BROMIDE
  53. DUONEB [Concomitant]
     Active Substance: ALBUTEROL SULFATE\IPRATROPIUM BROMIDE

REACTIONS (4)
  - Chronic kidney disease [Not Recovered/Not Resolved]
  - Acute kidney injury [Not Recovered/Not Resolved]
  - Renal failure [Unknown]
  - Gastrooesophageal reflux disease [Not Recovered/Not Resolved]

NARRATIVE: CASE EVENT DATE: 20130217
